FAERS Safety Report 9330280 (Version 1)
Quarter: 2013Q2

REPORT INFORMATION
  Report Type: Spontaneous
  Country: US (occurrence: US)
  Receive Date: 20130605
  Receipt Date: 20130605
  Transmission Date: 20140414
  Serious: No
  Sender: FDA-Public Use
  Company Number: US-B.I. PHARMACEUTICALS,INC./RIDGEFIELD-2013-BI-15237BP

PATIENT
  Age: 35 Year
  Sex: Male
  Weight: 72.57 kg

DRUGS (5)
  1. SPIRIVA [Suspect]
     Indication: CHRONIC OBSTRUCTIVE PULMONARY DISEASE
     Dosage: 18 MCG
     Route: 055
     Dates: start: 20130523
  2. ASMANEX [Concomitant]
     Indication: CHRONIC OBSTRUCTIVE PULMONARY DISEASE
     Dosage: 1 PUF
     Route: 055
     Dates: start: 20130523
  3. FLUNISOLIDE NASAL [Concomitant]
     Indication: LACRIMATION INCREASED
     Dosage: FORMULATION: SPRAY, DAILY DOSE: 2 SPRAYS
     Route: 045
     Dates: start: 20130523
  4. LORATADINE [Concomitant]
     Indication: LACRIMATION INCREASED
     Dosage: 10 MG
     Route: 048
     Dates: start: 20130523
  5. ALBUTEROL [Concomitant]
     Indication: CHRONIC OBSTRUCTIVE PULMONARY DISEASE
     Dosage: 2 PUF
     Route: 055
     Dates: start: 20130523

REACTIONS (9)
  - Mood swings [Not Recovered/Not Resolved]
  - Photosensitivity reaction [Not Recovered/Not Resolved]
  - Headache [Recovered/Resolved]
  - Adjustment disorder [Unknown]
  - Paraesthesia [Not Recovered/Not Resolved]
  - Fall [Recovered/Resolved]
  - Epistaxis [Recovered/Resolved]
  - Paraesthesia [Recovered/Resolved]
  - Chromaturia [Recovered/Resolved]
